FAERS Safety Report 22529641 (Version 1)
Quarter: 2023Q2

REPORT INFORMATION
  Report Type: Spontaneous
  Country: US (occurrence: US)
  Receive Date: 20230607
  Receipt Date: 20230607
  Transmission Date: 20230721
  Serious: No
  Sender: FDA-Public Use
  Company Number: US-AMGEN-USASP2023095043

PATIENT

DRUGS (2)
  1. OTEZLA [Suspect]
     Active Substance: APREMILAST
     Indication: Lichen planus
     Dosage: UNK
     Route: 065
     Dates: start: 2023
  2. OTEZLA [Suspect]
     Active Substance: APREMILAST
     Indication: Off label use

REACTIONS (4)
  - Insomnia [Unknown]
  - Off label use [Unknown]
  - Adverse reaction [Unknown]
  - Therapeutic product effect incomplete [Unknown]

NARRATIVE: CASE EVENT DATE: 20230101
